FAERS Safety Report 7318625-2 (Version None)
Quarter: 2011Q1

REPORT INFORMATION
  Report Type: 
  Country: None (occurrence: None)
  Receive Date: 20110223
  Receipt Date: 20110223
  Transmission Date: 20110831
  Serious: No
  Sender: FDA-Public Use
  Company Number: None

PATIENT
  Age: 40 Year
  Sex: Female

DRUGS (1)
  1. CIPROFLOXACIN [Suspect]
     Dates: start: 20110205, end: 20110205

REACTIONS (3)
  - PRURITUS [None]
  - INFUSION RELATED REACTION [None]
  - ERYTHEMA [None]
